FAERS Safety Report 17731084 (Version 1)
Quarter: 2020Q2

REPORT INFORMATION
  Report Type: Spontaneous
  Country: US (occurrence: US)
  Receive Date: 20200430
  Receipt Date: 20200430
  Transmission Date: 20200714
  Serious: Yes (Other)
  Sender: FDA-Public Use
  Company Number: US-009507513-2004USA007410

PATIENT
  Sex: Female
  Weight: 49.89 kg

DRUGS (1)
  1. SINEMET [Suspect]
     Active Substance: CARBIDOPA\LEVODOPA
     Indication: DOPA-RESPONSIVE DYSTONIA
     Dosage: UNK
     Route: 048
     Dates: start: 1976, end: 2002

REACTIONS (3)
  - Product use in unapproved indication [Unknown]
  - Tardive dyskinesia [Not Recovered/Not Resolved]
  - Muscle spasticity [Not Recovered/Not Resolved]

NARRATIVE: CASE EVENT DATE: 1976
